FAERS Safety Report 9324922 (Version 1)
Quarter: 2013Q2

REPORT INFORMATION
  Report Type: Spontaneous
  Country: DE (occurrence: DE)
  Receive Date: 20130603
  Receipt Date: 20130603
  Transmission Date: 20140414
  Serious: Yes (Other)
  Sender: FDA-Public Use
  Company Number: DE-PFIZER INC-2013162678

PATIENT
  Age: 23 Year
  Sex: Male

DRUGS (1)
  1. ZELDOX [Suspect]
     Indication: DEPRESSION
     Dosage: 1X/DAY IN THE EVENING

REACTIONS (5)
  - Overdose [Unknown]
  - Depressed level of consciousness [Unknown]
  - Gait disturbance [Unknown]
  - Disturbance in attention [Unknown]
  - Sedation [Unknown]
